FAERS Safety Report 9809123 (Version 4)
Quarter: 2014Q2

REPORT INFORMATION
  Report Type: Spontaneous
  Country: CA (occurrence: CA)
  Receive Date: 20140110
  Receipt Date: 20140606
  Transmission Date: 20141212
  Serious: Yes (Hospitalization)
  Sender: FDA-Public Use
  Company Number: CA-009507513-1311CAN012948

PATIENT
  Age: 51 Year
  Sex: Male
  Weight: 83.5 kg

DRUGS (4)
  1. VICTRELIS TRIPLE [Suspect]
     Indication: CHRONIC HEPATITIS C
     Dosage: 2400 MG
     Route: 048
     Dates: start: 20130913, end: 20131210
  2. VICTRELIS TRIPLE [Suspect]
     Dosage: 1000 MG
     Route: 048
     Dates: start: 20130913, end: 20131210
  3. VICTRELIS TRIPLE [Suspect]
     Dosage: UNK
     Route: 058
     Dates: start: 20130913, end: 20131210
  4. ASPIRIN [Concomitant]
     Indication: BLOOD PRESSURE
     Dosage: 81 MG
     Route: 048
     Dates: start: 2009

REACTIONS (49)
  - Peripheral swelling [Not Recovered/Not Resolved]
  - Peripheral swelling [Not Recovered/Not Resolved]
  - Arthralgia [Not Recovered/Not Resolved]
  - Joint swelling [Not Recovered/Not Resolved]
  - Rash [Not Recovered/Not Resolved]
  - Pain in extremity [Unknown]
  - Skin discolouration [Not Recovered/Not Resolved]
  - Paraesthesia [Not Recovered/Not Resolved]
  - Peripheral swelling [Not Recovered/Not Resolved]
  - Laboratory test abnormal [Unknown]
  - Haematocrit decreased [Unknown]
  - Red blood cell count decreased [Unknown]
  - Lymphocyte count decreased [Unknown]
  - International normalised ratio increased [Unknown]
  - Blood albumin decreased [Unknown]
  - Haematocrit decreased [Unknown]
  - Red blood cell count decreased [Unknown]
  - Lymphocyte count decreased [Unknown]
  - C-reactive protein increased [Unknown]
  - Red blood cell sedimentation rate increased [Unknown]
  - Blood albumin decreased [Unknown]
  - Red blood cell count decreased [Unknown]
  - Alpha 1 globulin increased [Unknown]
  - Alpha 2 globulin increased [Unknown]
  - Red blood cell count decreased [Unknown]
  - Haematocrit decreased [Unknown]
  - Lymphocyte count decreased [Unknown]
  - Blood chloride decreased [Unknown]
  - Low density lipoprotein decreased [Unknown]
  - Red cell distribution width increased [Unknown]
  - Cardiolipin antibody positive [Unknown]
  - Haematocrit decreased [Unknown]
  - Red blood cell count decreased [Unknown]
  - Antiphospholipid antibodies positive [Unknown]
  - Low density lipoprotein decreased [Unknown]
  - Lymphocyte count decreased [Unknown]
  - Red cell distribution width increased [Unknown]
  - Red cell distribution width increased [Unknown]
  - Red cell distribution width increased [Unknown]
  - Red cell distribution width increased [Unknown]
  - Blood cholesterol decreased [Unknown]
  - Vasculitis [Unknown]
  - Hepatitis C virus test positive [Unknown]
  - Hepatitis C virus test positive [Unknown]
  - Blood triglycerides decreased [Unknown]
  - Blood cholesterol decreased [Unknown]
  - Bone density abnormal [Unknown]
  - Low density lipoprotein decreased [Unknown]
  - PCO2 increased [Unknown]
